FAERS Safety Report 5623704-1 (Version None)
Quarter: 2008Q1

REPORT INFORMATION
  Report Type: 
  Country: None (occurrence: None)
  Receive Date: 20080129
  Receipt Date: 20070112
  Transmission Date: 20080703
  Serious: Yes (Other)
  Sender: FDA-Public Use
  Company Number: WAES 0611USA00636

PATIENT
  Age: 30 Year
  Sex: Female

DRUGS (2)
  1. PRIMAXIN [Suspect]
     Indication: OSTEOMYELITIS
     Dosage: IV
  2. GENTAMICIN [Suspect]

REACTIONS (1)
  - DEAFNESS [None]
